FAERS Safety Report 8307208-3 (Version None)
Quarter: 2012Q2

REPORT INFORMATION
  Report Type: 
  Country: None (occurrence: None)
  Receive Date: 20120420
  Receipt Date: 20120412
  Transmission Date: 20120825
  Serious: Yes (Disabling)
  Sender: FDA-Public Use
  Company Number: 2012SP014392

PATIENT
  Age: 56 Year
  Sex: Male

DRUGS (4)
  1. REMERON [Suspect]
     Indication: ANXIETY
     Dosage: 15 MG; ;PO 30 MG;HS;PO
     Route: 048
  2. REMERON [Suspect]
     Indication: DEPRESSION
     Dosage: 15 MG; ;PO 30 MG;HS;PO
     Route: 048
  3. EFFEXOR XR [Suspect]
     Indication: DEPRESSION
     Dosage: 75 MG;;PO 150 MG;HS;PO
     Route: 048
     Dates: start: 20120131
  4. EFFEXOR XR [Suspect]
     Indication: ANXIETY
     Dosage: 75 MG;;PO 150 MG;HS;PO
     Route: 048
     Dates: start: 20120131

REACTIONS (2)
  - IMPAIRED WORK ABILITY [None]
  - IRRITABILITY [None]
